FAERS Safety Report 9400540 (Version 2)
Quarter: 2013Q4

REPORT INFORMATION
  Report Type: Spontaneous
  Country: None (occurrence: None)
  Receive Date: 20130711
  Receipt Date: 20131115
  Transmission Date: 20140711
  Serious: Yes (Disabling)
  Sender: FDA-Public Use
  Company Number: 2013/142

PATIENT
  Age: 73 Year
  Sex: Female
  Weight: 58.06 kg

DRUGS (4)
  1. TERBINAFINE (NO PREF. NAME) 250 MG [Suspect]
     Indication: ONYCHOMYCOSIS
     Route: 048
     Dates: start: 20130604, end: 20130614
  2. ATORVASTATIN [Concomitant]
  3. OMEPRAZOLE [Concomitant]
  4. PARACETAMOL [Concomitant]

REACTIONS (5)
  - Vomiting [None]
  - Ataxia [None]
  - Activities of daily living impaired [None]
  - Dizziness [None]
  - Nausea [None]
